FAERS Safety Report 4686129-1 (Version None)
Quarter: 2005Q2

REPORT INFORMATION
  Report Type: 
  Country: None (occurrence: None)
  Receive Date: 20050609
  Receipt Date: 20050603
  Transmission Date: 20051028
  Serious: Yes (Other)
  Sender: FDA-Public Use
  Company Number: PHEH2005US06297

PATIENT
  Age: 52 Year
  Sex: Female

DRUGS (3)
  1. VIVELLE-DOT [Suspect]
     Indication: HYSTERECTOMY
     Dosage: 0.1 MG, TWICE WEEKLY
     Route: 062
     Dates: start: 20021101
  2. SYNTHROID [Concomitant]
  3. REMERON [Concomitant]

REACTIONS (4)
  - BALANCE DISORDER [None]
  - DIZZINESS [None]
  - HOT FLUSH [None]
  - THROAT CANCER [None]
